FAERS Safety Report 15523843 (Version 3)
Quarter: 2018Q4

REPORT INFORMATION
  Report Type: Spontaneous
  Country: US (occurrence: US)
  Receive Date: 20181019
  Receipt Date: 20181213
  Transmission Date: 20190205
  Serious: No
  Sender: FDA-Public Use
  Company Number: US-SA-2018SA289895

PATIENT
  Age: 25 Year
  Sex: Male

DRUGS (2)
  1. DUPIXENT [Suspect]
     Active Substance: DUPILUMAB
     Indication: DERMATITIS ATOPIC
     Dosage: 600 MG EVERY 28 DAYS
     Route: 058
     Dates: start: 20181017
  2. DUPIXENT [Suspect]
     Active Substance: DUPILUMAB
     Indication: PRURIGO

REACTIONS (3)
  - Product use issue [Unknown]
  - Injection site erythema [Unknown]
  - Nasopharyngitis [Unknown]
